FAERS Safety Report 4334673-9 (Version None)
Quarter: 2004Q2

REPORT INFORMATION
  Report Type: 
  Country: None (occurrence: None)
  Receive Date: 20040405
  Receipt Date: 20040330
  Transmission Date: 20050107
  Serious: Yes (Other)
  Sender: FDA-Public Use
  Company Number: 2004203789US

PATIENT
  Age: 52 Year
  Sex: Female
  Weight: 59 kg

DRUGS (6)
  1. CELEBREX [Suspect]
     Indication: OSTEOARTHRITIS
     Dosage: 200 MG, QD, ORAL
     Route: 048
     Dates: start: 20010101, end: 20040312
  2. CELEBREX [Suspect]
     Indication: OSTEOARTHRITIS
     Dosage: 200 MG, QD, ORAL
     Route: 048
     Dates: start: 20040315, end: 20040315
  3. SINGULAIR [Concomitant]
  4. FOSAMAX [Concomitant]
  5. CLARITIN [Concomitant]
  6. SEREVENT [Concomitant]

REACTIONS (2)
  - SPINAL LAMINECTOMY [None]
  - VISION BLURRED [None]
